FAERS Safety Report 8371648-7 (Version None)
Quarter: 2012Q2

REPORT INFORMATION
  Report Type: 
  Country: None (occurrence: None)
  Receive Date: 20120518
  Receipt Date: 20120509
  Transmission Date: 20120825
  Serious: Yes (Hospitalization)
  Sender: FDA-Public Use
  Company Number: IT-FRI-1000030453

PATIENT
  Sex: Female

DRUGS (4)
  1. ESCITALOPRAM OXALATE [Suspect]
     Indication: DEPRESSION
     Dosage: 4 DF
     Route: 048
     Dates: start: 20110101, end: 20110115
  2. PLAVIX [Concomitant]
     Route: 048
  3. RANITIDINE [Concomitant]
     Indication: PRODUCT USED FOR UNKNOWN INDICATION
     Dosage: 150 MG
  4. RAMIPRIL [Concomitant]
     Dosage: 1 DF

REACTIONS (2)
  - PSYCHOMOTOR HYPERACTIVITY [None]
  - HALLUCINATION, VISUAL [None]
